FAERS Safety Report 4442659-9 (Version None)
Quarter: 2004Q3

REPORT INFORMATION
  Report Type: 
  Country: None (occurrence: None)
  Receive Date: 20040903
  Receipt Date: 20040512
  Transmission Date: 20050211
  Serious: Yes (Other)
  Sender: FDA-Public Use
  Company Number: 2004UW09901

PATIENT
  Age: 55 Year
  Sex: Female
  Weight: 113.3993 kg

DRUGS (6)
  1. CRESTOR [Suspect]
     Indication: BLOOD CHOLESTEROL INCREASED
     Dosage: 10 MG QD PO
     Route: 048
  2. GLUCOVANCE [Concomitant]
  3. DILANTIN [Concomitant]
  4. EFFEXOR [Concomitant]
  5. PREMARIN [Concomitant]
  6. NEURONTIN [Concomitant]

REACTIONS (1)
  - POLLAKIURIA [None]
